FAERS Safety Report 25786913 (Version 1)
Quarter: 2025Q3

REPORT INFORMATION
  Report Type: Spontaneous
  Country: US (occurrence: US)
  Receive Date: 20250910
  Receipt Date: 20250910
  Transmission Date: 20251021
  Serious: No
  Sender: ANI
  Company Number: US-ANIPHARMA-2025-US-011244

PATIENT
  Age: 29 Year
  Sex: Male
  Weight: 64.86 kg

DRUGS (6)
  1. CORTICOTROPIN [Suspect]
     Active Substance: CORTICOTROPIN
     Indication: Multiple sclerosis
     Route: 030
     Dates: start: 202502, end: 20250227
  2. GABAPENTIN [Concomitant]
     Active Substance: GABAPENTIN
  3. NUEDEXTA [Concomitant]
     Active Substance: DEXTROMETHORPHAN HYDROBROMIDE\QUINIDINE SULFATE
  4. Anti-allergy medication [Concomitant]
  5. VITAMIN D [Concomitant]
     Active Substance: VITAMIN D NOS
  6. MAGNESIUM [Concomitant]
     Active Substance: MAGNESIUM

REACTIONS (1)
  - Anxiety [Recovered/Resolved]

NARRATIVE: CASE EVENT DATE: 20250220
